FAERS Safety Report 24030083 (Version 1)
Quarter: 2024Q2

REPORT INFORMATION
  Report Type: Spontaneous
  Country: US (occurrence: US)
  Receive Date: 20240628
  Receipt Date: 20240628
  Transmission Date: 20240716
  Serious: No
  Sender: FDA-Public Use
  Company Number: US-KYOWAKIRIN-2024KK015676

PATIENT

DRUGS (1)
  1. POTELIGEO [Suspect]
     Active Substance: MOGAMULIZUMAB-KPKC
     Indication: Adult T-cell lymphoma/leukaemia
     Dosage: UNK
     Route: 065

REACTIONS (2)
  - Drug eruption [Unknown]
  - Off label use [Unknown]
